FAERS Safety Report 9826137 (Version 1)
Quarter: 2014Q1

REPORT INFORMATION
  Report Type: Spontaneous
  Country: US (occurrence: US)
  Receive Date: 20140117
  Receipt Date: 20140117
  Transmission Date: 20141002
  Serious: Yes (Hospitalization)
  Sender: FDA-Public Use
  Company Number: US-PFIZER INC-2014015679

PATIENT
  Age: 77 Year
  Sex: Female
  Weight: 75.74 kg

DRUGS (1)
  1. TIKOSYN [Suspect]
     Indication: ATRIAL FIBRILLATION
     Dosage: 350 UG, 2X/DAY
     Dates: start: 20130213

REACTIONS (2)
  - Drug ineffective [Unknown]
  - Drug dispensing error [Unknown]
